FAERS Safety Report 23134581 (Version 1)
Quarter: 2023Q4

REPORT INFORMATION
  Report Type: Spontaneous
  Country: US (occurrence: US)
  Receive Date: 20231101
  Receipt Date: 20231101
  Transmission Date: 20240110
  Serious: No
  Sender: FDA-Public Use
  Company Number: US-SA-SAC20231030001352

PATIENT
  Age: 52 Year
  Sex: Female
  Weight: 50.34 kg

DRUGS (4)
  1. DUPIXENT [Suspect]
     Active Substance: DUPILUMAB
     Indication: Illness
     Dosage: 300 MG, QW
     Route: 058
     Dates: start: 202304
  2. COLCHICINE [Concomitant]
     Active Substance: COLCHICINE
  3. PULMICORT TURBUHALER [Concomitant]
     Active Substance: BUDESONIDE
  4. PROTONIS [Concomitant]

REACTIONS (4)
  - Diarrhoea [Unknown]
  - Dyspepsia [Unknown]
  - Pyrexia [Unknown]
  - Fatigue [Unknown]

NARRATIVE: CASE EVENT DATE: 20230901
